FAERS Safety Report 4722548-2 (Version None)
Quarter: 2005Q3

REPORT INFORMATION
  Report Type: 
  Country: None (occurrence: None)
  Receive Date: 20050720
  Receipt Date: 20050706
  Transmission Date: 20060218
  Serious: Yes (Hospitalization)
  Sender: FDA-Public Use
  Company Number: 215750

PATIENT
  Age: 63 Year
  Sex: Female

DRUGS (9)
  1. RITUXAN [Suspect]
     Indication: NON-HODGKIN'S LYMPHOMA
     Dates: start: 19961101, end: 20040101
  2. COUMADIN [Concomitant]
  3. ADVAIR DISKUS (SALMETEROL XINAFOATE, FLUTICASONE PROPIONATE) [Concomitant]
  4. SPIRIVA HANDIHALER (TIOTROPIUM BROMIDE0 [Concomitant]
  5. ALBUTEROL (ALBUTEROL SULFATE, ALBUEROL) [Concomitant]
  6. LEVSIN (HYOSCYAMINE SULFATE) [Concomitant]
  7. BACLOFEN [Concomitant]
  8. COLACE (DOCUSATE SODIUM) [Concomitant]
  9. OXYGEN (OXYGEN) [Concomitant]

REACTIONS (10)
  - APHASIA [None]
  - DEMYELINATION [None]
  - EYE DISORDER [None]
  - GAZE PALSY [None]
  - GENERAL PHYSICAL HEALTH DETERIORATION [None]
  - HEMIPLEGIA [None]
  - MUSCLE SPASMS [None]
  - NUCLEAR MAGNETIC RESONANCE IMAGING ABNORMAL [None]
  - PNEUMONIA ASPIRATION [None]
  - PROGRESSIVE MULTIFOCAL LEUKOENCEPHALOPATHY [None]
